FAERS Safety Report 8188490-2 (Version None)
Quarter: 2012Q1

REPORT INFORMATION
  Report Type: 
  Country: None (occurrence: None)
  Receive Date: 20120306
  Receipt Date: 20120301
  Transmission Date: 20120608
  Serious: Yes (Hospitalization)
  Sender: FDA-Public Use
  Company Number: PHHY2012CO016385

PATIENT
  Sex: Female

DRUGS (5)
  1. MAGNESIUM [Concomitant]
  2. CALCIUM [Concomitant]
  3. MEOCARTIL [Concomitant]
  4. ZOLEDRONOC ACID [Suspect]
     Dosage: 5 MG/100 ML
     Route: 042
     Dates: start: 20110101
  5. VITAMIN D [Concomitant]

REACTIONS (2)
  - PULMONARY OEDEMA [None]
  - PLEURAL EFFUSION [None]
